FAERS Safety Report 18415821 (Version 1)
Quarter: 2020Q4

REPORT INFORMATION
  Report Type: Spontaneous
  Country: US (occurrence: US)
  Receive Date: 20201022
  Receipt Date: 20201022
  Transmission Date: 20210114
  Serious: Yes (Hospitalization)
  Sender: FDA-Public Use
  Company Number: None

PATIENT
  Age: 17 Year
  Sex: Male
  Weight: 78.9 kg

DRUGS (1)
  1. BENADRYL [Suspect]
     Active Substance: DIPHENHYDRAMINE HYDROCHLORIDE
     Route: 048
     Dates: start: 20201006, end: 20201006

REACTIONS (5)
  - Alanine aminotransferase increased [None]
  - Heart rate increased [None]
  - Aspartate aminotransferase increased [None]
  - Blood pressure increased [None]
  - Electrocardiogram QT prolonged [None]
